FAERS Safety Report 15644661 (Version 2)
Quarter: 2018Q4

REPORT INFORMATION
  Report Type: Spontaneous
  Country: US (occurrence: US)
  Receive Date: 20181121
  Receipt Date: 20181219
  Transmission Date: 20190205
  Serious: No
  Sender: FDA-Public Use
  Company Number: US-BAUSCH-BL-2018-031735

PATIENT
  Age: 78 Year
  Sex: Male
  Weight: 81.72 kg

DRUGS (2)
  1. XIFAXAN [Suspect]
     Active Substance: RIFAXIMIN
     Indication: HEPATIC CIRRHOSIS
     Route: 048
     Dates: start: 20181112
  2. XIFAXAN [Suspect]
     Active Substance: RIFAXIMIN
     Indication: HEPATIC STEATOSIS
     Route: 048

REACTIONS (5)
  - Chest pain [Recovered/Resolved]
  - Vomiting [Recovered/Resolved]
  - Therapy cessation [Recovered/Resolved]
  - Product availability issue [Recovered/Resolved]
  - Secretion discharge [Recovering/Resolving]

NARRATIVE: CASE EVENT DATE: 20181110
